FAERS Safety Report 9758642 (Version 1)
Quarter: 2013Q4

REPORT INFORMATION
  Report Type: Spontaneous
  Country: US (occurrence: None)
  Receive Date: 20131216
  Receipt Date: 20131216
  Transmission Date: 20140711
  Serious: Yes (Other)
  Sender: FDA-Public Use
  Company Number: 1301USA004837

PATIENT
  Age: 69 Year
  Sex: Female

DRUGS (1)
  1. HYZAAR(LOSARTAN POTASSIUM (+) HYDROCHLOROTHIAZIDE) FILM-COATED TABLET [Suspect]
     Dosage: . ORAL

REACTIONS (1)
  - Myocardial infarction [None]
